FAERS Safety Report 21444905 (Version 1)
Quarter: 2022Q4

REPORT INFORMATION
  Report Type: Spontaneous
  Country: US (occurrence: None)
  Receive Date: 20221011
  Receipt Date: 20221011
  Transmission Date: 20230113
  Serious: Yes (Other)
  Sender: FDA-Public Use
  Company Number: None

PATIENT
  Age: 32 Year
  Sex: Female
  Weight: 86.4 kg

DRUGS (3)
  1. BEBTELOVIMAB [Suspect]
     Active Substance: BEBTELOVIMAB
     Indication: COVID-19
     Dosage: FREQUENCY : ONCE;?
     Route: 040
     Dates: start: 20221007, end: 20221007
  2. BUPROPION [Concomitant]
     Active Substance: BUPROPION
     Dates: start: 20200914
  3. LEVOTHYROXINE [Concomitant]
     Active Substance: LEVOTHYROXINE
     Dates: start: 20200629

REACTIONS (7)
  - Nausea [None]
  - Flushing [None]
  - Chest discomfort [None]
  - Back pain [None]
  - Dyspnoea [None]
  - Blood pressure increased [None]
  - Respiratory rate increased [None]

NARRATIVE: CASE EVENT DATE: 20221007
